FAERS Safety Report 6774453-8 (Version None)
Quarter: 2010Q2

REPORT INFORMATION
  Report Type: 
  Country: None (occurrence: None)
  Receive Date: 20100617
  Receipt Date: 20100603
  Transmission Date: 20101027
  Serious: Yes (Hospitalization, Other)
  Sender: FDA-Public Use
  Company Number: PHHY2009GB32562

PATIENT
  Sex: Female

DRUGS (1)
  1. CLOZARIL [Suspect]
     Indication: SCHIZOPHRENIA
     Dosage: 800 MG DAILY
     Route: 048
     Dates: start: 20080222

REACTIONS (12)
  - CIRCULATORY COLLAPSE [None]
  - DIZZINESS [None]
  - DRUG DOSE OMISSION [None]
  - ENCEPHALITIS [None]
  - EOSINOPHIL COUNT INCREASED [None]
  - FULL BLOOD COUNT INCREASED [None]
  - INTRACRANIAL PRESSURE INCREASED [None]
  - LETHARGY [None]
  - MALAISE [None]
  - NEUROSURGERY [None]
  - ORTHOSTATIC HYPOTENSION [None]
  - VENTRICULO-PERITONEAL SHUNT [None]
